FAERS Safety Report 8062885 (Version 3)
Quarter: 2013Q4

REPORT INFORMATION
  Report Type: Spontaneous
  Country: US (occurrence: US)
  Receive Date: 20110801
  Receipt Date: 20131230
  Transmission Date: 20140711
  Serious: Yes (Death, Hospitalization)
  Sender: FDA-Public Use
  Company Number: US-GLAXOSMITHKLINE-A0938859A

PATIENT
  Age: 71 Year
  Sex: Male
  Weight: 81.8 kg

DRUGS (1)
  1. AVANDIA [Suspect]
     Indication: DIABETES MELLITUS
     Route: 048
     Dates: start: 20040601, end: 20080326

REACTIONS (4)
  - Cardiopulmonary failure [Fatal]
  - Myocardial infarction [Unknown]
  - Coronary artery disease [Unknown]
  - Transient ischaemic attack [Unknown]
